FAERS Safety Report 23976348 (Version 1)
Quarter: 2024Q2

REPORT INFORMATION
  Report Type: Spontaneous
  Country: US (occurrence: None)
  Receive Date: 20240613
  Receipt Date: 20240613
  Transmission Date: 20240716
  Serious: Yes (Other)
  Sender: FDA-Public Use
  Company Number: None

PATIENT
  Age: 34 Year
  Sex: Female
  Weight: 108.9 kg

DRUGS (1)
  1. ZEPBOUND [Suspect]
     Active Substance: TIRZEPATIDE
     Indication: Obesity
     Dosage: 2.5 MG WEEKLY SUBCUTANEOUS?
     Route: 058
     Dates: start: 20240529

REACTIONS (1)
  - Pharyngitis [None]

NARRATIVE: CASE EVENT DATE: 20240613
